FAERS Safety Report 8006116-5 (Version None)
Quarter: 2011Q4

REPORT INFORMATION
  Report Type: 
  Country: None (occurrence: None)
  Receive Date: 20111226
  Receipt Date: 20111216
  Transmission Date: 20120403
  Serious: Yes (Hospitalization, Other)
  Sender: FDA-Public Use
  Company Number: DE-PFIZER INC-2011289213

PATIENT
  Age: 8 Day
  Sex: Male
  Weight: 3 kg

DRUGS (3)
  1. CYTOTEC [Suspect]
     Dosage: 200 UG, UNK
     Route: 048
     Dates: start: 20110419
  2. RETROVIR [Concomitant]
     Indication: PROPHYLAXIS AGAINST HIV INFECTION
     Dosage: 0.6 ML, 4X/DAY
  3. ERGOCALCIFEROL [Concomitant]
     Dosage: 500 IU, UNK

REACTIONS (8)
  - MEDICATION ERROR [None]
  - SOMNOLENCE [None]
  - PYREXIA [None]
  - TACHYPNOEA [None]
  - BLOOD PH DECREASED [None]
  - BLOOD GLUCOSE INCREASED [None]
  - PCO2 INCREASED [None]
  - MUSCLE TWITCHING [None]
